FAERS Safety Report 12200599 (Version 1)
Quarter: 2016Q1

REPORT INFORMATION
  Report Type: Spontaneous
  Country: US (occurrence: US)
  Receive Date: 20160322
  Receipt Date: 20160322
  Transmission Date: 20160526
  Serious: No
  Sender: FDA-Public Use
  Company Number: US-SA-2015SA034130

PATIENT
  Age: 63 Year
  Sex: Male

DRUGS (2)
  1. LEUKINE [Suspect]
     Active Substance: SARGRAMOSTIM
     Indication: PROSTATE CANCER
     Route: 065
     Dates: start: 201408, end: 201410
  2. LEUKINE [Suspect]
     Active Substance: SARGRAMOSTIM
     Indication: PROSTATE CANCER
     Route: 065
     Dates: end: 201501

REACTIONS (3)
  - Drug ineffective for unapproved indication [Unknown]
  - Off label use [Unknown]
  - White blood cell count increased [Not Recovered/Not Resolved]

NARRATIVE: CASE EVENT DATE: 201501
